FAERS Safety Report 4955125-9 (Version None)
Quarter: 2006Q1

REPORT INFORMATION
  Report Type: 
  Country: None (occurrence: None)
  Receive Date: 20060322
  Receipt Date: 20060306
  Transmission Date: 20060701
  Serious: Yes (Hospitalization, Other)
  Sender: FDA-Public Use
  Company Number: US_0510122674

PATIENT
  Age: 56 Year
  Sex: Female
  Weight: 86.2 kg

DRUGS (5)
  1. ZYPREXA [Suspect]
     Indication: MENTAL DISORDER
     Dates: start: 20020101
  2. DEPAKOTE [Concomitant]
  3. INSULIN (INSULIN) [Concomitant]
  4. LASIX (FUROSEMIDE, FUROSEMIDE SODIUM) [Concomitant]
  5. ANTIHYPERTENSIVE AGENT (ANTIHYPERTENSIVE AGENT UNKNOWN FORMULATION) [Concomitant]

REACTIONS (26)
  - ABDOMINAL PAIN [None]
  - ANAEMIA [None]
  - ASTHMA [None]
  - BLOOD GLUCOSE INCREASED [None]
  - BLOOD PRESSURE INCREASED [None]
  - CARDIAC FAILURE ACUTE [None]
  - CARDIAC FAILURE CONGESTIVE [None]
  - CHRONIC OBSTRUCTIVE PULMONARY DISEASE [None]
  - COLONIC POLYP [None]
  - CONDITION AGGRAVATED [None]
  - CORONARY ARTERY DISEASE [None]
  - DIABETES MELLITUS INADEQUATE CONTROL [None]
  - DIABETIC COMPLICATION [None]
  - DIABETIC ENTEROPATHY [None]
  - DIABETIC NEUROPATHY [None]
  - DIARRHOEA [None]
  - DIVERTICULUM INTESTINAL [None]
  - FAECAL INCONTINENCE [None]
  - GLYCOSYLATED HAEMOGLOBIN INCREASED [None]
  - HAEMORRHOIDS [None]
  - HYPERTENSION [None]
  - NEURALGIA [None]
  - PNEUMONIA [None]
  - PROCEDURAL PAIN [None]
  - RENAL FAILURE ACUTE [None]
  - TREATMENT NONCOMPLIANCE [None]
